FAERS Safety Report 19651624 (Version 1)
Quarter: 2021Q3

REPORT INFORMATION
  Report Type: Spontaneous
  Country: US (occurrence: US)
  Receive Date: 20210731
  Receipt Date: 20210731
  Transmission Date: 20211014
  Serious: Yes (Death, Hospitalization)
  Sender: FDA-Public Use
  Company Number: None

PATIENT
  Age: 33 Month
  Sex: Male
  Weight: 14.6 kg

DRUGS (6)
  1. ZINECARD [Suspect]
     Active Substance: DEXRAZOXANE HYDROCHLORIDE
     Dates: end: 20210717
  2. MYLOTARG [Suspect]
     Active Substance: GEMTUZUMAB OZOGAMICIN
     Dates: end: 20210603
  3. HYDROCORTISONE. [Suspect]
     Active Substance: HYDROCORTISONE
     Dates: end: 20210712
  4. METHOTREXATE. [Suspect]
     Active Substance: METHOTREXATE
     Dates: end: 20210712
  5. CYTARABINE. [Suspect]
     Active Substance: CYTARABINE
     Dates: end: 20210721
  6. DAUNORUBICIN [Suspect]
     Active Substance: DAUNORUBICIN
     Dates: end: 20210717

REACTIONS (22)
  - Ventricular tachycardia [None]
  - Haemorrhage [None]
  - Pulmonary haemorrhage [None]
  - Intestinal ischaemia [None]
  - Intestinal perforation [None]
  - Leukostasis syndrome [None]
  - Herpes simplex viraemia [None]
  - Hypotension [None]
  - Neutropenia [None]
  - Respiratory distress [None]
  - Bradycardia [None]
  - Cardiac arrest [None]
  - Renal replacement therapy [None]
  - Abdominal distension [None]
  - Portal venous gas [None]
  - Renal failure [None]
  - Agitation [None]
  - Dialysis [None]
  - Peritonitis [None]
  - Pericarditis [None]
  - Bone marrow failure [None]
  - Pulseless electrical activity [None]

NARRATIVE: CASE EVENT DATE: 20210724
